FAERS Safety Report 5322439-2 (Version None)
Quarter: 2007Q2

REPORT INFORMATION
  Report Type: 
  Country: None (occurrence: None)
  Receive Date: 20070511
  Receipt Date: 20070503
  Transmission Date: 20071010
  Serious: Yes (Other)
  Sender: FDA-Public Use
  Company Number: PHBS2007ZA07603

PATIENT
  Age: 59 Year
  Sex: Female

DRUGS (1)
  1. VALSARTAN AND HYDROCHLOROTHIAZIDE [Suspect]
     Dosage: VALS 80 / HCT 12.5 MG/DAY
     Route: 048

REACTIONS (4)
  - BRONCHITIS [None]
  - INFECTION [None]
  - OEDEMA PERIPHERAL [None]
  - PNEUMONIA [None]
